FAERS Safety Report 5211965-2 (Version None)
Quarter: 2007Q1

REPORT INFORMATION
  Report Type: 
  Country: None (occurrence: None)
  Receive Date: 20070118
  Receipt Date: 20070117
  Transmission Date: 20070707
  Serious: Yes (Other)
  Sender: FDA-Public Use
  Company Number: US-GLAXOSMITHKLINE-A0631312A

PATIENT
  Sex: Female

DRUGS (1)
  1. IMITREX [Suspect]
     Dates: start: 20061211

REACTIONS (4)
  - ACCIDENTAL EXPOSURE [None]
  - BLINDNESS [None]
  - HEADACHE [None]
  - PHARMACEUTICAL PRODUCT COMPLAINT [None]
